FAERS Safety Report 22339699 (Version 1)
Quarter: 2023Q2

REPORT INFORMATION
  Report Type: Spontaneous
  Country: US (occurrence: None)
  Receive Date: 20230517
  Receipt Date: 20230517
  Transmission Date: 20230722
  Serious: Yes (Hospitalization)
  Sender: FDA-Public Use
  Company Number: None

PATIENT
  Age: 83 Year
  Sex: Female
  Weight: 67.13 kg

DRUGS (11)
  1. LENALIDOMIDE [Suspect]
     Active Substance: LENALIDOMIDE
     Indication: Plasma cell myeloma
     Dosage: FREQUENCY : DAILY;?
     Route: 048
     Dates: start: 202303
  2. ACYCLOVIR [Concomitant]
     Active Substance: ACYCLOVIR
  3. ASPIRIN [Concomitant]
     Active Substance: ASPIRIN
  4. DEXAMETHASONE [Concomitant]
     Active Substance: DEXAMETHASONE
  5. LISINOPRIL [Concomitant]
     Active Substance: LISINOPRIL
  6. PERSERVISION AREDS [Concomitant]
  7. SUPER MULTIPLE [Concomitant]
  8. VELCADE [Concomitant]
     Active Substance: BORTEZOMIB
  9. VITAMIN B12 [Concomitant]
     Active Substance: CYANOCOBALAMIN
  10. VITAMIN E [Concomitant]
     Active Substance: .ALPHA.-TOCOPHEROL
  11. XGEVA [Concomitant]
     Active Substance: DENOSUMAB

REACTIONS (2)
  - Fluid retention [None]
  - Cardiac disorder [None]

NARRATIVE: CASE EVENT DATE: 20230419
